FAERS Safety Report 9891995 (Version 2)
Quarter: 2014Q1

REPORT INFORMATION
  Report Type: Spontaneous
  Country: US (occurrence: None)
  Receive Date: 20140210
  Receipt Date: 20140318
  Transmission Date: 20141002
  Serious: Yes (Other)
  Sender: FDA-Public Use
  Company Number: AUR-APL-2014-01372

PATIENT
  Sex: Female

DRUGS (1)
  1. VALACYCLOVIR [Suspect]
     Indication: HERPES VIRUS INFECTION
     Dosage: 2 GM (1 GM, 2 IN 1 D), ORAL
     Route: 048
     Dates: start: 20140124

REACTIONS (6)
  - Local swelling [None]
  - Rash pustular [None]
  - Swelling face [None]
  - Rash [None]
  - Body temperature increased [None]
  - Herpes simplex [None]
